FAERS Safety Report 14162095 (Version 1)
Quarter: 2017Q4

REPORT INFORMATION
  Report Type: Report from Study
  Country: IL (occurrence: IL)
  Receive Date: 20171106
  Receipt Date: 20171106
  Transmission Date: 20180321
  Serious: Yes (Life-Threatening, Hospitalization, Other)
  Sender: FDA-Public Use
  Company Number: IL-MYLANLABS-2017M1068661

PATIENT
  Age: 5 Decade
  Sex: Male

DRUGS (4)
  1. AZATHIOPRINE. [Suspect]
     Active Substance: AZATHIOPRINE
     Indication: PEMPHIGUS
     Dosage: INITIAL DOSE NOT STATED; THEN ADMINISTERED 100 [UNIT NOT STATED]
     Route: 065
  2. PREDNISONE. [Suspect]
     Active Substance: PREDNISONE
     Indication: PEMPHIGUS
     Dosage: 40 MG DAILY
     Route: 065
  3. MYCOPHENOLATE MOFETIL. [Suspect]
     Active Substance: MYCOPHENOLATE MOFETIL
     Indication: PEMPHIGUS
     Route: 065
  4. AZATHIOPRINE. [Suspect]
     Active Substance: AZATHIOPRINE
     Dosage: 100 [UNIT NOT STATED]
     Route: 065

REACTIONS (6)
  - Cushing^s syndrome [Unknown]
  - Myopathy [Unknown]
  - Diabetes mellitus [Unknown]
  - Pulmonary hypertension [Not Recovered/Not Resolved]
  - Pulmonary embolism [Unknown]
  - Decreased activity [Unknown]
